FAERS Safety Report 19661848 (Version 2)
Quarter: 2021Q3

REPORT INFORMATION
  Report Type: Spontaneous
  Country: US (occurrence: US)
  Receive Date: 20210805
  Receipt Date: 20210812
  Transmission Date: 20211014
  Serious: Yes (Other)
  Sender: FDA-Public Use
  Company Number: US-GW PHARMA-202107USGW03755

PATIENT

DRUGS (5)
  1. EPIDIOLEX [Suspect]
     Active Substance: CANNABIDIOL
     Indication: LENNOX-GASTAUT SYNDROME
     Dosage: 1000 MILLIGRAM, BID / STOP DATE: UNK 2021
     Route: 048
     Dates: start: 20191122
  2. VALPROATE [Suspect]
     Active Substance: VALPROIC ACID
     Dosage: BACK TO FULL DOSE
     Route: 065
     Dates: start: 202101
  3. EPIDIOLEX [Suspect]
     Active Substance: CANNABIDIOL
     Indication: STATUS EPILEPTICUS
     Dosage: START DATE: UNK JUN 2021, STOP DATE: UNK 2021, DOSE INCREASED
     Route: 048
  4. EPIDIOLEX [Suspect]
     Active Substance: CANNABIDIOL
     Dosage: START DATE: UNK 2021, 850 MILLIGRAM, BID
     Route: 048
  5. VALPROATE [Suspect]
     Active Substance: VALPROIC ACID
     Indication: PRODUCT USED FOR UNKNOWN INDICATION
     Dosage: UNKNOWN DOSE (TRIED TO WEAN)
     Route: 065
     Dates: end: 202010

REACTIONS (11)
  - Blood cholesterol increased [Unknown]
  - Hepatic steatosis [Unknown]
  - Red blood cell sedimentation rate increased [Unknown]
  - Lipase increased [Unknown]
  - Hepatic enzyme increased [Recovered/Resolved]
  - Metabolic syndrome [Unknown]
  - High density lipoprotein decreased [Unknown]
  - Pancreatitis [Unknown]
  - Blood triglycerides increased [Unknown]
  - C-reactive protein increased [Unknown]
  - Pyrexia [Unknown]

NARRATIVE: CASE EVENT DATE: 2021
